FAERS Safety Report 9214437 (Version 2)
Quarter: 2013Q4

REPORT INFORMATION
  Report Type: Spontaneous
  Country: US (occurrence: US)
  Receive Date: 20130405
  Receipt Date: 20131226
  Transmission Date: 20140711
  Serious: Yes (Other)
  Sender: FDA-Public Use
  Company Number: US-BAYER-2013-040522

PATIENT
  Age: 32 Year
  Sex: Female

DRUGS (5)
  1. YAZ [Suspect]
     Dosage: UNK
     Dates: start: 2009, end: 2010
  2. YASMIN [Suspect]
     Dosage: UNK
     Dates: start: 2009, end: 2010
  3. OCELLA [Suspect]
     Dosage: UNK
     Dates: start: 2009, end: 2010
  4. LEXAPRO [Concomitant]
  5. BENADRYL [Concomitant]

REACTIONS (10)
  - Cholelithiasis [None]
  - Abdominal pain [None]
  - General physical health deterioration [None]
  - Injury [None]
  - Pain [None]
  - Emotional distress [None]
  - Pain [None]
  - Anxiety [None]
  - Anhedonia [None]
  - Fear [None]
